FAERS Safety Report 4306919-4 (Version None)
Quarter: 2004Q1

REPORT INFORMATION
  Report Type: 
  Country: None (occurrence: None)
  Receive Date: 20040225
  Receipt Date: 20040217
  Transmission Date: 20041129
  Serious: Yes (Disabling)
  Sender: FDA-Public Use
  Company Number: 2004GB00029

PATIENT
  Age: 57 Year
  Sex: Female

DRUGS (3)
  1. TAMOXIFEN [Suspect]
     Indication: BREAST CANCER
     Dates: start: 20010101
  2. ARIMIDEX [Suspect]
     Indication: BREAST CANCER
     Dosage: 1 MG QD PO
     Route: 048
     Dates: start: 20020618, end: 20020930
  3. ARIMIDEX [Suspect]
     Indication: BREAST CANCER
     Dosage: 1 MG QD PO
     Route: 048
     Dates: start: 20030903, end: 20031001

REACTIONS (11)
  - ABDOMINAL PAIN UPPER [None]
  - AGITATION [None]
  - AMNESIA [None]
  - ANXIETY [None]
  - HOT FLUSH [None]
  - INSOMNIA [None]
  - MENOPAUSAL SYMPTOMS [None]
  - MIGRAINE [None]
  - MUSCLE CRAMP [None]
  - MUSCLE TIGHTNESS [None]
  - NERVOUSNESS [None]
